FAERS Safety Report 15608113 (Version 2)
Quarter: 2018Q4

REPORT INFORMATION
  Report Type: Spontaneous
  Country: NL (occurrence: NL)
  Receive Date: 20181112
  Receipt Date: 20181205
  Transmission Date: 20190205
  Serious: Yes (Hospitalization, Other)
  Sender: FDA-Public Use
  Company Number: NL-PFIZER INC-2018458042

PATIENT
  Age: 49 Year
  Sex: Female

DRUGS (5)
  1. SOMAVERT [Suspect]
     Active Substance: PEGVISOMANT
     Indication: ACROMEGALY
     Dosage: 80 MG, 2X/WEEK
     Route: 058
     Dates: start: 20170602
  2. LEVOTHYROXINE. [Concomitant]
     Active Substance: LEVOTHYROXINE
     Dosage: 100 UG, 1X/DAY
     Route: 048
  3. METFORMINE [METFORMIN] [Concomitant]
     Active Substance: METFORMIN HYDROCHLORIDE
     Dosage: 850 MG, 3X/DAY
  4. LANETTE WAX [Concomitant]
     Dosage: 2-3X/DAY
  5. LANREOTIDE [Concomitant]
     Active Substance: LANREOTIDE
     Dosage: UNK

REACTIONS (4)
  - Product use issue [Unknown]
  - Vomiting [Not Recovered/Not Resolved]
  - Nephrolithiasis [Recovering/Resolving]
  - Nausea [Not Recovered/Not Resolved]

NARRATIVE: CASE EVENT DATE: 20170602
